FAERS Safety Report 8795880 (Version 2)
Quarter: 2013Q1

REPORT INFORMATION
  Report Type: Spontaneous
  Country: US (occurrence: US)
  Receive Date: 20120919
  Receipt Date: 20130115
  Transmission Date: 20140127
  Serious: Yes (Other)
  Sender: FDA-Public Use
  Company Number: US-BAYER-2012-096424

PATIENT
  Age: 30 Year
  Sex: Female

DRUGS (11)
  1. BETASERON [Suspect]
     Indication: RELAPSING-REMITTING MULTIPLE SCLEROSIS
     Dosage: UNK
     Dates: start: 2003, end: 2006
  2. BACLOFEN [Concomitant]
  3. CITRACAL CALCIUM GUMMIES [Concomitant]
  4. DETROL LA [Concomitant]
  5. FISH OIL [Concomitant]
  6. METROCREAM [Concomitant]
     Dosage: 0.75%
  7. MULTIVITAMIN [Concomitant]
  8. OCELLA [Concomitant]
  9. PROTOPIC [Concomitant]
  10. PROZAC [Concomitant]
  11. GILENYA [Concomitant]
     Dosage: UNK
     Dates: start: 20120401

REACTIONS (5)
  - Fall [None]
  - Facial bones fracture [None]
  - Face injury [None]
  - Multiple sclerosis relapse [None]
  - Visual acuity reduced [None]
